FAERS Safety Report 7433988-5 (Version None)
Quarter: 2011Q2

REPORT INFORMATION
  Report Type: 
  Country: None (occurrence: None)
  Receive Date: 20110420
  Receipt Date: 20110420
  Transmission Date: 20111010
  Serious: Yes (Hospitalization)
  Sender: FDA-Public Use
  Company Number: None

PATIENT
  Age: 41 Year
  Sex: Female
  Weight: 72.1219 kg

DRUGS (1)
  1. TEGRETOL [Suspect]
     Indication: TIC
     Dosage: 100MG BID PO
     Route: 048
     Dates: start: 20110314, end: 20110416

REACTIONS (10)
  - PRURITUS [None]
  - PHARYNGEAL ULCERATION [None]
  - OROPHARYNGEAL BLISTERING [None]
  - EYELID OEDEMA [None]
  - NASAL MUCOSAL DISORDER [None]
  - BURNING SENSATION [None]
  - MOUTH ULCERATION [None]
  - SWELLING FACE [None]
  - SWOLLEN TONGUE [None]
  - BLISTER [None]
